FAERS Safety Report 15701160 (Version 1)
Quarter: 2018Q4

REPORT INFORMATION
  Report Type: Spontaneous
  Country: CN (occurrence: CN)
  Receive Date: 20181207
  Receipt Date: 20181207
  Transmission Date: 20190205
  Serious: Yes (Other)
  Sender: FDA-Public Use
  Company Number: CN-B.I. PHARMACEUTICALS,INC./RIDGEFIELD-2018-BI-059216

PATIENT
  Age: 62 Year
  Sex: Male

DRUGS (2)
  1. MELILOTUS [Suspect]
     Active Substance: HOMEOPATHICS
     Indication: ABDOMINAL DISTENSION
     Dosage: 12 TABLETS DAILY DOSE, THRICE DAILY
     Route: 048
     Dates: start: 20181114
  2. HARNAL [Suspect]
     Active Substance: TAMSULOSIN HYDROCHLORIDE
     Indication: BENIGN PROSTATIC HYPERPLASIA
     Dosage: MODIFIED-RELEASE CAPSULE, HARD
     Route: 048
     Dates: start: 20160510, end: 20181130

REACTIONS (2)
  - Loss of consciousness [Recovering/Resolving]
  - Somnolence [Recovering/Resolving]

NARRATIVE: CASE EVENT DATE: 20181129
